FAERS Safety Report 17717180 (Version 1)
Quarter: 2020Q2

REPORT INFORMATION
  Report Type: Spontaneous
  Country: US (occurrence: US)
  Receive Date: 20200428
  Receipt Date: 20200428
  Transmission Date: 20200714
  Serious: Yes (Hospitalization, Other)
  Sender: FDA-Public Use
  Company Number: US-EMCURE PHARMACEUTICALS LTD-2020-EPL-000476

PATIENT
  Age: 45 Year
  Sex: Female

DRUGS (1)
  1. GEMCITABINE HYDROCHLORIDE. [Suspect]
     Active Substance: GEMCITABINE HYDROCHLORIDE
     Indication: CUTANEOUS T-CELL LYMPHOMA STAGE III
     Dosage: 1000 MILLIGRAM/SQ. METER

REACTIONS (3)
  - Skin necrosis [Recovered/Resolved]
  - Off label use [Unknown]
  - Cytopenia [Unknown]
